FAERS Safety Report 7287981-6 (Version None)
Quarter: 2011Q1

REPORT INFORMATION
  Report Type: 
  Country: None (occurrence: None)
  Receive Date: 20110207
  Receipt Date: 20110207
  Transmission Date: 20110831
  Serious: Yes (Other)
  Sender: FDA-Public Use
  Company Number: None

PATIENT
  Sex: Female
  Weight: 56.4 kg

DRUGS (1)
  1. CARBOPLATIN [Suspect]
     Dosage: 400 MG ONCE IV
     Route: 042
     Dates: start: 20100510, end: 20100510

REACTIONS (5)
  - ERYTHEMA [None]
  - PRURITUS [None]
  - INFUSION RELATED REACTION [None]
  - PARAESTHESIA [None]
  - PARAESTHESIA ORAL [None]
